FAERS Safety Report 9454733 (Version 2)
Quarter: 2013Q3

REPORT INFORMATION
  Report Type: Report from Study
  Country: US (occurrence: US)
  Receive Date: 20130812
  Receipt Date: 20130906
  Transmission Date: 20140515
  Serious: Yes (Other)
  Sender: FDA-Public Use
  Company Number: US-US-EMD SERONO, INC.-7228707

PATIENT
  Age: 22 Year
  Sex: Male

DRUGS (4)
  1. REBIF [Suspect]
     Indication: PRODUCT USED FOR UNKNOWN INDICATION
     Route: 058
     Dates: start: 20130717
  2. REBIF [Suspect]
     Route: 058
  3. IBUPROFEN [Suspect]
     Indication: PREMEDICATION
  4. NAPROXEN [Suspect]
     Indication: PREMEDICATION

REACTIONS (4)
  - Haematochezia [Recovering/Resolving]
  - Epistaxis [Recovered/Resolved]
  - Abdominal pain [Not Recovered/Not Resolved]
  - Fatigue [Not Recovered/Not Resolved]
